FAERS Safety Report 21592669 (Version 3)
Quarter: 2023Q2

REPORT INFORMATION
  Report Type: Spontaneous
  Country: JP (occurrence: JP)
  Receive Date: 20221114
  Receipt Date: 20230417
  Transmission Date: 20230722
  Serious: Yes (Other)
  Sender: FDA-Public Use
  Company Number: JP-Eisai-202209058_LEN-RCC_P_1

PATIENT
  Age: 64 Year
  Sex: Male

DRUGS (7)
  1. LENVIMA [Suspect]
     Active Substance: LENVATINIB
     Indication: Renal cell carcinoma
     Route: 048
     Dates: start: 20220906, end: 20221002
  2. LENVIMA [Suspect]
     Active Substance: LENVATINIB
     Route: 048
     Dates: start: 20221017, end: 202303
  3. LENVIMA [Suspect]
     Active Substance: LENVATINIB
     Dosage: DOSE REDUCED BY ONE LEVEL (DOSE AND FREQUENCY UNKNOWN)
     Route: 048
     Dates: start: 202303, end: 202303
  4. LENVIMA [Suspect]
     Active Substance: LENVATINIB
     Dosage: DOSE REDUCED BY TWO LEVEL (DOSE AND FREQUENCY UNKNOWN)
     Route: 048
     Dates: start: 202303, end: 202303
  5. LENVIMA [Suspect]
     Active Substance: LENVATINIB
     Dosage: DOSE REDUCED BY THREE LEVEL (DOSE AND FREQUENCY UNKNOWN)
     Route: 048
     Dates: start: 202303, end: 202303
  6. KEYTRUDA [Concomitant]
     Active Substance: PEMBROLIZUMAB
     Indication: Renal cell carcinoma
     Route: 041
     Dates: start: 20220906
  7. AMLODIPINE [Concomitant]
     Active Substance: AMLODIPINE BESYLATE
     Indication: Hypertension
     Dosage: DOSE AND FREQUENCY UNKNOWN
     Route: 065
     Dates: start: 20220916

REACTIONS (2)
  - Proteinuria [Unknown]
  - Hypertension [Recovering/Resolving]

NARRATIVE: CASE EVENT DATE: 20220916
